FAERS Safety Report 4360369-3 (Version None)
Quarter: 2004Q2

REPORT INFORMATION
  Report Type: 
  Country: None (occurrence: None)
  Receive Date: 20040517
  Receipt Date: 20040507
  Transmission Date: 20050107
  Serious: Yes (Hospitalization)
  Sender: FDA-Public Use
  Company Number: 2004030758

PATIENT
  Age: 18 Month
  Sex: Female
  Weight: 11.3399 kg

DRUGS (1)
  1. INFANT'S PEDIACARE DECONGESTANT AND COUGH DROPS (DEXTREMETHORPHAN, PSE [Suspect]
     Indication: NASOPHARYNGITIS
     Dosage: 0.8 ML ONCE, ORAL
     Route: 048
     Dates: start: 20040501, end: 20040501

REACTIONS (1)
  - FEBRILE CONVULSION [None]
